FAERS Safety Report 8577478-5 (Version None)
Quarter: 2012Q3

REPORT INFORMATION
  Report Type: 
  Country: None (occurrence: None)
  Receive Date: 20120807
  Receipt Date: 20091113
  Transmission Date: 20120928
  Serious: Yes (Other)
  Sender: FDA-Public Use
  Company Number: CO-PFIZER INC-2012190517

PATIENT
  Age: 60 Year
  Sex: Female

DRUGS (4)
  1. ASPIRIN [Concomitant]
     Dosage: 100 MG, 1X/DAY
     Route: 065
  2. NIFEDIPINE [Concomitant]
     Dosage: 30 MG, 1X/DAY
     Route: 065
  3. LOSARTAN [Concomitant]
     Dosage: 50 MG, 1X/DAY
     Route: 065
  4. LIPITOR [Suspect]
     Dosage: 10 MG, 1X/DAY
     Route: 065

REACTIONS (5)
  - CAROTID ARTERY DISEASE [None]
  - HAEMATURIA [None]
  - CRYSTALLURIA [None]
  - LEUKOCYTURIA [None]
  - DRUG INEFFECTIVE [None]
